FAERS Safety Report 17767431 (Version 1)
Quarter: 2020Q2

REPORT INFORMATION
  Report Type: Spontaneous
  Country: DE (occurrence: DE)
  Receive Date: 20200511
  Receipt Date: 20200511
  Transmission Date: 20200714
  Serious: Yes (Hospitalization)
  Sender: FDA-Public Use
  Company Number: DE-ANIPHARMA-2020-DE-000092

PATIENT
  Sex: Male

DRUGS (1)
  1. CANDESARTAN CILEXETIL. [Suspect]
     Active Substance: CANDESARTAN CILEXETIL
     Indication: HYPERTENSION
     Dosage: 32 MG QD
     Route: 048
     Dates: start: 20200125, end: 20200413

REACTIONS (2)
  - Blood pressure increased [Recovering/Resolving]
  - Paralysis [Recovering/Resolving]
